FAERS Safety Report 7391564-7 (Version None)
Quarter: 2011Q2

REPORT INFORMATION
  Report Type: 
  Country: None (occurrence: None)
  Receive Date: 20110404
  Receipt Date: 20110321
  Transmission Date: 20111010
  Serious: Yes (Other)
  Sender: FDA-Public Use
  Company Number: PHHY2011FR26606

PATIENT
  Sex: Female
  Weight: 87 kg

DRUGS (4)
  1. ISOMERIDE [Suspect]
     Route: 048
  2. GYNERGENE [Suspect]
     Dosage: 3 DF EVERY YEAR
     Route: 048
     Dates: start: 19700101, end: 19800101
  3. MEDIATOR [Suspect]
     Indication: GLUCOSE TOLERANCE IMPAIRED
     Dosage: 3 DF, TID
     Route: 048
     Dates: start: 19920101, end: 19980101
  4. PROZAC [Concomitant]

REACTIONS (5)
  - AORTIC VALVE INCOMPETENCE [None]
  - PULMONARY VALVE STENOSIS [None]
  - MITRAL VALVE STENOSIS [None]
  - DYSPNOEA [None]
  - TRICUSPID VALVE INCOMPETENCE [None]
